FAERS Safety Report 5622321-7 (Version None)
Quarter: 2008Q1

REPORT INFORMATION
  Report Type: 
  Country: None (occurrence: None)
  Receive Date: 20080114
  Receipt Date: 20070614
  Transmission Date: 20080703
  Serious: Yes (Life-Threatening, Hospitalization)
  Sender: FDA-Public Use
  Company Number: A03200703872

PATIENT
  Age: 67 Year
  Sex: Male

DRUGS (4)
  1. PLAVIX [Suspect]
     Indication: CEREBROVASCULAR ACCIDENT
     Dosage: 75 MG QD -ORAL
     Route: 048
     Dates: start: 20070525, end: 20070612
  2. ALTEPLASE -SOLUTION [Suspect]
     Indication: CEREBROVASCULAR ACCIDENT
     Dosage: INTRAVENOUS NOS
     Route: 042
     Dates: start: 20070525, end: 20070525
  3. GLIPIZIDE [Concomitant]
  4. LISINOPRIL [Concomitant]

REACTIONS (2)
  - BLOOD PRESSURE IMMEASURABLE [None]
  - SMALL INTESTINAL HAEMORRHAGE [None]
